FAERS Safety Report 15555109 (Version 1)
Quarter: 2018Q4

REPORT INFORMATION
  Report Type: Spontaneous
  Country: US (occurrence: US)
  Receive Date: 20181026
  Receipt Date: 20181026
  Transmission Date: 20190205
  Serious: No
  Sender: FDA-Public Use
  Company Number: US-MYLANLABS-2018M1075584

PATIENT
  Sex: Female
  Weight: 68 kg

DRUGS (1)
  1. EMSAM [Suspect]
     Active Substance: SELEGILINE
     Indication: MAJOR DEPRESSION
     Dosage: 6 MG, UNK
     Route: 062
     Dates: start: 20180831

REACTIONS (2)
  - Application site rash [Recovering/Resolving]
  - Application site erythema [Recovering/Resolving]
